FAERS Safety Report 7502663-0 (Version None)
Quarter: 2011Q2

REPORT INFORMATION
  Report Type: 
  Country: None (occurrence: None)
  Receive Date: 20110525
  Receipt Date: 20110513
  Transmission Date: 20111010
  Serious: Yes (Other)
  Sender: FDA-Public Use
  Company Number: PHHY2011GR40999

PATIENT
  Age: 17 Year
  Sex: Female

DRUGS (3)
  1. EXTAVIA [Suspect]
     Indication: MULTIPLE SCLEROSIS
     Dosage: 0.75 ML, (3/4 OF EXTAVIA DOSAGE)
  2. EXTAVIA [Suspect]
     Dosage: 0.5 ML, UNK
  3. EXTAVIA [Suspect]
     Dosage: 1.0 ML, (A FULL EXTAVIA DOSAGE)

REACTIONS (1)
  - ALOPECIA [None]
